FAERS Safety Report 6122488-0 (Version None)
Quarter: 2009Q1

REPORT INFORMATION
  Report Type: 
  Country: None (occurrence: None)
  Receive Date: 20090318
  Receipt Date: 20081201
  Transmission Date: 20090719
  Serious: No
  Sender: FDA-Public Use
  Company Number: US-ASTRAZENECA-2008UW26712

PATIENT
  Age: 56 Year
  Sex: Female
  Weight: 57.6 kg

DRUGS (5)
  1. SYMBICORT [Suspect]
     Indication: ASTHMA
     Dosage: 80/4.5 MCG
     Route: 055
     Dates: start: 20081130
  2. ALBUTEROL [Concomitant]
  3. ALBUTEROL [Concomitant]
  4. ACYCLOVIR [Concomitant]
  5. ELAVIL [Concomitant]

REACTIONS (1)
  - DYSPNOEA [None]
